FAERS Safety Report 5835262-7 (Version None)
Quarter: 2008Q3

REPORT INFORMATION
  Report Type: 
  Country: None (occurrence: None)
  Receive Date: 20080731
  Receipt Date: 20080715
  Transmission Date: 20090109
  Serious: Yes (Other)
  Sender: FDA-Public Use
  Company Number: WAES 0807USA03496

PATIENT

DRUGS (3)
  1. DECADRON [Suspect]
     Indication: DIFFUSE LARGE B-CELL LYMPHOMA
     Dosage: 40 MG/DAILY
     Route: 048
  2. CISPLATIN [Concomitant]
  3. IRINOTECAN HCL [Concomitant]

REACTIONS (1)
  - FEBRILE NEUTROPENIA [None]
